FAERS Safety Report 15558372 (Version 1)
Quarter: 2018Q4

REPORT INFORMATION
  Report Type: Spontaneous
  Country: US (occurrence: US)
  Receive Date: 20181028
  Receipt Date: 20181028
  Transmission Date: 20190205
  Serious: No
  Sender: FDA-Public Use
  Company Number: US-JNJFOC-20180930761

PATIENT
  Age: 77 Year
  Sex: Male

DRUGS (1)
  1. ERLEADA [Suspect]
     Active Substance: APALUTAMIDE
     Indication: PROSTATE CANCER RECURRENT
     Dosage: 4 TABLETS (60 MG EACH)
     Route: 065

REACTIONS (2)
  - Paraesthesia [Unknown]
  - Hypoaesthesia [Unknown]
